FAERS Safety Report 5918520-7 (Version None)
Quarter: 2008Q4

REPORT INFORMATION
  Report Type: 
  Country: None (occurrence: None)
  Receive Date: 20081015
  Receipt Date: 20081009
  Transmission Date: 20090506
  Serious: Yes (Life-Threatening, Hospitalization, Other)
  Sender: FDA-Public Use
  Company Number: CA-AVENTIS-200819457GDDC

PATIENT
  Age: 59 Year
  Sex: Male

DRUGS (10)
  1. LANTUS [Suspect]
     Indication: DIABETES MELLITUS
     Route: 058
     Dates: start: 20050322, end: 20081002
  2. OPTIPEN (INSULIN PUMP) [Suspect]
     Indication: DIABETES MELLITUS
  3. CODE UNBROKEN [Suspect]
     Route: 048
     Dates: start: 20050322
  4. NORVASC [Concomitant]
     Dates: start: 20050301
  5. LISINOPRIL [Concomitant]
     Dates: start: 20050301
  6. PLAVIX [Concomitant]
     Dates: start: 20050301
  7. BISOPROLOL [Concomitant]
     Dates: start: 20050301
  8. METFORMIN [Concomitant]
     Indication: DIABETES MELLITUS
     Dates: start: 20050301
  9. ASPIRIN [Concomitant]
     Dates: start: 20050301
  10. FENOFIBRATE [Concomitant]
     Dates: start: 20050301

REACTIONS (4)
  - ACUTE MYOCARDIAL INFARCTION [None]
  - BACK PAIN [None]
  - HYPOGLYCAEMIC SEIZURE [None]
  - PAIN IN EXTREMITY [None]
